FAERS Safety Report 25998336 (Version 1)
Quarter: 2025Q4

REPORT INFORMATION
  Report Type: Other
  Country: EU (occurrence: EU)
  Receive Date: 20251105
  Receipt Date: 20251105
  Transmission Date: 20260119
  Serious: Yes (Hospitalization)
  Sender: Atnahs Healthcare
  Company Number: None

PATIENT

DRUGS (4)
  1. ANAPROX [Suspect]
     Active Substance: NAPROXEN SODIUM
     Indication: Poisoning deliberate
     Dosage: 8800 MG ONCE
     Route: 048
     Dates: start: 20251018, end: 20251018
  2. SKENAN [Suspect]
     Active Substance: MORPHINE SULFATE
     Indication: Poisoning deliberate
     Dosage: 560 MG ONCE
     Route: 048
     Dates: start: 20251018, end: 20251018
  3. NEFOPAM [Suspect]
     Active Substance: NEFOPAM
     Indication: Poisoning deliberate
     Dosage: 900 MG, ONCE
     Route: 048
     Dates: start: 20251018, end: 20251018
  4. ACETAMINOPHEN\OPIUM [Suspect]
     Active Substance: ACETAMINOPHEN\OPIUM
     Indication: Poisoning deliberate
     Dosage: 48 DOSAGE FORM ONCE
     Route: 048
     Dates: start: 20251018, end: 20251018

REACTIONS (5)
  - Somnolence [Recovering/Resolving]
  - Miosis [Recovering/Resolving]
  - Bradypnoea [Recovering/Resolving]
  - Acute kidney injury [Recovering/Resolving]
  - Rhabdomyolysis [Recovering/Resolving]

NARRATIVE: CASE EVENT DATE: 20251019
